FAERS Safety Report 9155674 (Version 2)
Quarter: 2013Q3

REPORT INFORMATION
  Report Type: Other
  Country: JP (occurrence: JP)
  Receive Date: 20130311
  Receipt Date: 20130814
  Transmission Date: 20140515
  Serious: Yes (Other)
  Sender: FDA-Public Use
  Company Number: JP-BRISTOL-MYERS SQUIBB COMPANY-17457094

PATIENT
  Age: 43 Year
  Sex: Female

DRUGS (3)
  1. MITOMYCIN-C [Suspect]
     Indication: CERVIX CARCINOMA
     Dosage: INJECTION; DAY 1
  2. CISPLATIN [Suspect]
     Indication: CERVIX CARCINOMA
     Dosage: INJECTION
  3. ETOPOSIDE [Suspect]
     Indication: CERVIX CARCINOMA
     Dosage: INJECTION

REACTIONS (1)
  - Thrombotic microangiopathy [Not Recovered/Not Resolved]
